FAERS Safety Report 14385446 (Version 2)
Quarter: 2018Q4

REPORT INFORMATION
  Report Type: Spontaneous
  Country: US (occurrence: US)
  Receive Date: 20180115
  Receipt Date: 20181030
  Transmission Date: 20190204
  Serious: Yes (Other)
  Sender: FDA-Public Use
  Company Number: US-SA-2017SA059640

PATIENT
  Age: 28 Year
  Sex: Female
  Weight: 54.43 kg

DRUGS (3)
  1. DOCETAXEL. [Suspect]
     Active Substance: DOCETAXEL
     Indication: BREAST CANCER FEMALE
     Dosage: 114 MG,Q3W
     Route: 042
     Dates: start: 20140117, end: 20140117
  2. DOCETAXEL. [Suspect]
     Active Substance: DOCETAXEL
     Dosage: 114 MG,Q3W
     Route: 042
     Dates: start: 20140502, end: 20140502
  3. PARAPLATIN [Concomitant]
     Active Substance: CARBOPLATIN

REACTIONS (6)
  - Alopecia [Recovering/Resolving]
  - Psychological trauma [Unknown]
  - Emotional distress [Unknown]
  - Anxiety [Unknown]
  - Impaired quality of life [Unknown]
  - Pain [Unknown]

NARRATIVE: CASE EVENT DATE: 20141101
